FAERS Safety Report 25272435 (Version 2)
Quarter: 2025Q2

REPORT INFORMATION
  Report Type: Spontaneous
  Country: CN (occurrence: CN)
  Receive Date: 20250506
  Receipt Date: 20250530
  Transmission Date: 20250716
  Serious: Yes (Hospitalization)
  Sender: Hugel Aesthetics
  Company Number: CN-Hugel Aesthetics-2176198

PATIENT
  Age: 49 Year
  Sex: Female

DRUGS (1)
  1. LETYBO [Suspect]
     Active Substance: LETIBOTULINUMTOXINA-WLBG
     Indication: Skin wrinkling
     Dates: start: 20250323

REACTIONS (12)
  - Drug eruption [Recovered/Resolved]
  - Lymphadenopathy [Unknown]
  - Serum ferritin increased [Recovering/Resolving]
  - Drug reaction with eosinophilia and systemic symptoms [Recovering/Resolving]
  - Liver injury [Recovering/Resolving]
  - Rhinovirus infection [Unknown]
  - Hepatic function abnormal [Recovering/Resolving]
  - White blood cell count increased [Unknown]
  - Systemic infection [Unknown]
  - Pain [Recovered/Resolved]
  - Pyrexia [Recovered/Resolved]
  - Nasopharyngitis [Recovered/Resolved]

NARRATIVE: CASE EVENT DATE: 20250330
